FAERS Safety Report 8176246-6 (Version None)
Quarter: 2012Q1

REPORT INFORMATION
  Report Type: 
  Country: None (occurrence: None)
  Receive Date: 20120301
  Receipt Date: 20120223
  Transmission Date: 20120608
  Serious: Yes (Hospitalization)
  Sender: FDA-Public Use
  Company Number: CA-JNJFOC-20120212147

PATIENT
  Sex: Male
  Weight: 62 kg

DRUGS (13)
  1. RABEPRAZOLE SODIUM [Concomitant]
     Dosage: 1 TAB QD FOR 100 DAYS
     Route: 065
  2. DICLOFENAC SODIUM [Concomitant]
     Dosage: 1 TAB BID FOR 100 DAYS
     Route: 048
  3. SENOKOT [Concomitant]
     Dosage: 1-2 TAB BID AS NECESSARY FOR 100 DAYS
     Route: 065
  4. HYDROXYZINE [Concomitant]
     Dosage: 25 MG CAPSULE 1 TAB TID,PRN FOR 30 DAYS
     Route: 065
  5. BACLOFEN [Concomitant]
     Dosage: 2-3 TABLETS TID FOR 100DAYS
     Route: 065
  6. CODEINE CONTIN [Concomitant]
     Dosage: FOR 100 DAYS
     Route: 065
  7. CLOBETASOL PROPIONATE [Concomitant]
     Dosage: 0.05% CREAM 1 APPLICATION TWICE A DAY AS NECESSARY FOR 100 DAYS
     Route: 065
  8. FINASTERIDE [Concomitant]
     Dosage: 1 TABLET QD FOR 100 DAYS
     Route: 065
  9. ADVAIR 250 DISKUS [Concomitant]
     Dosage: DSK/DEV 2 PUFF BID FOR 100 DAYS
     Route: 065
  10. REMICADE [Suspect]
     Indication: ANKYLOSING SPONDYLITIS
     Dosage: PATIENT RECEIVED 2 DOSES
     Route: 042
     Dates: start: 20111115, end: 20111129
  11. FLOMAX [Concomitant]
     Route: 065
  12. TIAMOL [Concomitant]
     Dosage: 0.05% CREAM 1 APPLICATION BID, PRN FOR 100 DAYS
     Route: 065
  13. QUININE SULFATE [Concomitant]
     Dosage: 300 MG  CAP 1 TAB BID, PRN FOR 100DAYS
     Route: 065

REACTIONS (3)
  - ERYTHEMA [None]
  - SEPSIS [None]
  - SKIN EXFOLIATION [None]
